FAERS Safety Report 4978222-0 (Version None)
Quarter: 2006Q2

REPORT INFORMATION
  Report Type: 
  Country: None (occurrence: None)
  Receive Date: 20060417
  Receipt Date: 20060406
  Transmission Date: 20061013
  Serious: Yes (Other)
  Sender: FDA-Public Use
  Company Number: 2006041060

PATIENT
  Age: 49 Year
  Sex: Female
  Weight: 58.0604 kg

DRUGS (2)
  1. BENADRYL [Suspect]
     Indication: SWOLLEN TONGUE
     Dosage: 2 TEASPOONS DAILY, ORAL
     Route: 048
     Dates: start: 20060324, end: 20060325
  2. FAMOTIDINE [Concomitant]

REACTIONS (4)
  - FATIGUE [None]
  - PARAESTHESIA [None]
  - PHARYNGEAL OEDEMA [None]
  - THROAT TIGHTNESS [None]
